FAERS Safety Report 6306482-2 (Version None)
Quarter: 2009Q3

REPORT INFORMATION
  Report Type: 
  Country: None (occurrence: None)
  Receive Date: 20090811
  Receipt Date: 20090811
  Transmission Date: 20100115
  Serious: Yes (Life-Threatening, Hospitalization, Other)
  Sender: FDA-Public Use
  Company Number: None

PATIENT
  Age: 75 Year
  Sex: Female
  Weight: 49.4421 kg

DRUGS (1)
  1. LORAZEPAM [Suspect]
     Indication: ANXIETY
     Dosage: 2X A DAY PO
     Route: 048
     Dates: start: 20090802, end: 20090805

REACTIONS (3)
  - ASTHENIA [None]
  - FEAR [None]
  - HALLUCINATION [None]
